FAERS Safety Report 6086022-6 (Version None)
Quarter: 2009Q1

REPORT INFORMATION
  Report Type: 
  Country: None (occurrence: None)
  Receive Date: 20090217
  Receipt Date: 20090217
  Transmission Date: 20090719
  Serious: Yes (Other)
  Sender: FDA-Public Use
  Company Number: None

PATIENT
  Age: 49 Year
  Sex: Female
  Weight: 58.9676 kg

DRUGS (4)
  1. LYRICA [Suspect]
     Indication: CONTINUOUS POSITIVE AIRWAY PRESSURE
     Dosage: 1 CAPSULE 3 TIMES A DAY PO
     Route: 048
     Dates: start: 20081219, end: 20090129
  2. LYRICA [Suspect]
     Indication: MIDDLE INSOMNIA
     Dosage: 1 CAPSULE 3 TIMES A DAY PO
     Route: 048
     Dates: start: 20081219, end: 20090129
  3. LYRICA [Suspect]
     Indication: RESPIRATORY DISORDER
     Dosage: 1 CAPSULE 3 TIMES A DAY PO
     Route: 048
     Dates: start: 20081219, end: 20090129
  4. LYRICA [Suspect]
     Indication: SLEEP DISORDER
     Dosage: 1 CAPSULE 3 TIMES A DAY PO
     Route: 048
     Dates: start: 20081219, end: 20090129

REACTIONS (14)
  - ANXIETY [None]
  - DEPRESSED MOOD [None]
  - DRUG INEFFECTIVE [None]
  - DRUG TOLERANCE [None]
  - FEELING ABNORMAL [None]
  - HYPOPHAGIA [None]
  - INSOMNIA [None]
  - IRRITABILITY [None]
  - PALPITATIONS [None]
  - PANIC ATTACK [None]
  - RESPIRATORY RATE INCREASED [None]
  - RESTLESSNESS [None]
  - TENSION [None]
  - TREMOR [None]
